FAERS Safety Report 15864682 (Version 1)
Quarter: 2019Q1

REPORT INFORMATION
  Report Type: Spontaneous
  Country: US (occurrence: US)
  Receive Date: 20190124
  Receipt Date: 20190124
  Transmission Date: 20190417
  Serious: No
  Sender: FDA-Public Use
  Company Number: JP-ALLERGAN-1774466US

PATIENT
  Sex: Female

DRUGS (1)
  1. PREDNISOLONE ACETATE, 1.0% [Suspect]
     Active Substance: PREDNISOLONE ACETATE
     Indication: EYE OPERATION
     Dosage: 1 GTT, TID
     Route: 047
     Dates: start: 201710

REACTIONS (3)
  - Eye pain [Recovering/Resolving]
  - Intraocular pressure increased [Unknown]
  - Eye irritation [Recovering/Resolving]
